FAERS Safety Report 7591426-6 (Version None)
Quarter: 2011Q2

REPORT INFORMATION
  Report Type: 
  Country: None (occurrence: None)
  Receive Date: 20110630
  Receipt Date: 20110630
  Transmission Date: 20111010
  Serious: No
  Sender: FDA-Public Use
  Company Number: None

PATIENT
  Age: 4 Year
  Sex: Female

DRUGS (3)
  1. CORZALL PLUS LIQUID [Suspect]
     Indication: NASAL CONGESTION
     Dosage: CONSULT PHYSICIAN ({6)
     Dates: start: 20101027
  2. CORZALL PLUS LIQUID [Suspect]
     Indication: RHINITIS
     Dosage: CONSULT PHYSICIAN ({6)
     Dates: start: 20101027
  3. CORZALL PLUS LIQUID [Suspect]
     Indication: COUGH
     Dosage: CONSULT PHYSICIAN ({6)
     Dates: start: 20101027

REACTIONS (7)
  - PARAESTHESIA [None]
  - FAILURE OF CHILD RESISTANT MECHANISM FOR PHARMACEUTICAL PRODUCT [None]
  - VOMITING [None]
  - PRURITUS [None]
  - ACCIDENTAL DRUG INTAKE BY CHILD [None]
  - SOMNOLENCE [None]
  - ACCIDENTAL OVERDOSE [None]
